FAERS Safety Report 12083274 (Version 1)
Quarter: 2016Q1

REPORT INFORMATION
  Report Type: Spontaneous
  Country: US (occurrence: US)
  Receive Date: 20160217
  Receipt Date: 20160217
  Transmission Date: 20160526
  Serious: No
  Sender: FDA-Public Use
  Company Number: US-MYLANLABS-2015M1000326

PATIENT
  Age: 2 Year
  Sex: Male
  Weight: 15 kg

DRUGS (2)
  1. VITAMINS                           /00067501/ [Concomitant]
     Active Substance: VITAMINS
     Dosage: UNK
  2. EPIPEN [Suspect]
     Active Substance: EPINEPHRINE
     Dosage: UNK MG, UNK
     Dates: start: 20150104, end: 20150104

REACTIONS (3)
  - Accidental exposure to product by child [Recovered/Resolved]
  - Injection site injury [Recovered/Resolved]
  - Injection site bruising [Recovered/Resolved]

NARRATIVE: CASE EVENT DATE: 20150104
